FAERS Safety Report 5703824-3 (Version None)
Quarter: 2008Q2

REPORT INFORMATION
  Report Type: 
  Country: None (occurrence: None)
  Receive Date: 20080414
  Receipt Date: 20080317
  Transmission Date: 20081010
  Serious: Yes (Death)
  Sender: FDA-Public Use
  Company Number: DE-BAYER-200816461GPV

PATIENT
  Sex: Male

DRUGS (11)
  1. MOXIFLOXACIN HCL [Suspect]
     Indication: SEPSIS
     Dosage: TOTAL DAILY DOSE: 400 MG
     Route: 041
     Dates: start: 20080311, end: 20080311
  2. MOXIFLOXACIN HCL [Suspect]
     Dosage: TOTAL DAILY DOSE: 200 MG
     Route: 041
     Dates: start: 20080312, end: 20080312
  3. MEROPENEM [Suspect]
     Indication: SEPSIS
     Dosage: TOTAL DAILY DOSE: 1 G  UNIT DOSE: 1 G
     Route: 041
     Dates: start: 20080311, end: 20080311
  4. MEROPENEM [Suspect]
     Dosage: TOTAL DAILY DOSE: 2 G  UNIT DOSE: 1 G
     Route: 041
     Dates: start: 20080312, end: 20080312
  5. INSULIN [Concomitant]
     Indication: DIABETES MELLITUS INADEQUATE CONTROL
     Route: 016
     Dates: start: 20080311, end: 20080311
  6. VASOPRESSIN [Concomitant]
     Indication: SEPTIC SHOCK
     Route: 065
     Dates: start: 20080311, end: 20080312
  7. EPINEPHRINE [Concomitant]
     Indication: SEPTIC SHOCK
     Route: 065
     Dates: start: 20080311, end: 20080312
  8. NORADRENALINE [Concomitant]
     Indication: SEPSIS
     Route: 065
     Dates: start: 20080311, end: 20080312
  9. TRANEXAMIC ACID [Concomitant]
     Indication: HAEMORRHAGE
     Route: 065
     Dates: start: 20080311, end: 20080312
  10. SUFENTANIL CITRATE [Concomitant]
     Indication: ANALGESIC THERAPY
     Route: 065
     Dates: start: 20080311, end: 20080312
  11. MIDAZOLAM HCL [Concomitant]
     Indication: ANAESTHESIA
     Dosage: TOTAL DAILY DOSE: 240 MG
     Route: 065
     Dates: start: 20080311, end: 20080312

REACTIONS (2)
  - ARRHYTHMIA [None]
  - BRADYCARDIA [None]
